FAERS Safety Report 5255524-4 (Version None)
Quarter: 2007Q1

REPORT INFORMATION
  Report Type: 
  Country: None (occurrence: None)
  Receive Date: 20070305
  Receipt Date: 20070219
  Transmission Date: 20070707
  Serious: Yes (Hospitalization)
  Sender: FDA-Public Use
  Company Number: JP-SHR-JP-2007-005261

PATIENT
  Age: 65 Year
  Sex: Male
  Weight: 55.5 kg

DRUGS (21)
  1. RITUXIMAB (ZENYAKU) [Suspect]
     Dosage: 375 MG/M2, 1X/DAY
     Route: 041
     Dates: start: 20060904, end: 20060904
  2. RITUXIMAB (ZENYAKU) [Suspect]
     Dosage: 375 MG/M2, 1X/DAY
     Route: 042
     Dates: start: 20061002, end: 20061002
  3. RITUXIMAB (ZENYAKU) [Suspect]
     Dosage: 375 MG/M2, 1X/DAY
     Route: 042
     Dates: start: 20061030, end: 20061030
  4. RITUXIMAB (ZENYAKU) [Suspect]
     Dosage: 375 MG/M2, 1X/DAY
     Route: 042
     Dates: start: 20061127, end: 20061127
  5. RITUXIMAB (ZENYAKU) [Suspect]
     Dosage: 375 MG/M2, 1X/DAY
     Route: 042
     Dates: start: 20061225, end: 20061225
  6. RITUXIMAB (ZENYAKU) [Suspect]
     Dosage: 375 MG/M2, 1X/DAY
     Route: 042
     Dates: start: 20070122, end: 20070122
  7. FLUDARABINE PHOSPHATE  (SH T 586 C) [Suspect]
     Dosage: 40 MG, 1X/DAY
     Route: 048
     Dates: start: 20060904, end: 20060908
  8. FLUDARABINE PHOSPHATE  (SH T 586 C) [Suspect]
     Dosage: 40 MG, 1X/DAY
     Route: 048
     Dates: start: 20061002, end: 20061006
  9. FLUDARABINE PHOSPHATE  (SH T 586 C) [Suspect]
     Dosage: 40 MG, 1X/DAY
     Route: 048
     Dates: start: 20061030, end: 20061103
  10. FLUDARABINE PHOSPHATE  (SH T 586 C) [Suspect]
     Dosage: 40 MG, 1X/DAY
     Route: 048
     Dates: start: 20061127, end: 20061201
  11. FLUDARABINE PHOSPHATE  (SH T 586 C) [Suspect]
     Dosage: 40 MG, 1X/DAY
     Route: 048
     Dates: start: 20061225, end: 20061225
  12. FLUDARABINE PHOSPHATE  (SH T 586 C) [Suspect]
     Dosage: 40 MG, 1X/DAY
     Route: 048
     Dates: start: 20070122, end: 20070126
  13. GASTER [Concomitant]
     Dosage: 20 MG, 1X/DAY
     Route: 048
     Dates: start: 20061227, end: 20070122
  14. BIOFERMIN R [Concomitant]
     Dosage: 1 TAB(S), 3X/DAY
     Route: 048
  15. CYANOCOBALAMIN [Concomitant]
     Dosage: 1000 A?G, 3X/DAY
     Route: 048
  16. RHYTHMY [Concomitant]
     Dosage: 1 MG, 1X/DAY
     Route: 048
  17. AMLODIPINE [Concomitant]
     Indication: HYPERTENSION
     Dosage: 2.5 MG, 1X/DAY
     Route: 048
  18. ALOSENN [Concomitant]
     Indication: CONSTIPATION
     Dosage: UNK, AS REQ'D
     Route: 048
  19. ULCERMIN [Concomitant]
     Dosage: 1 G, 3X/DAY
     Route: 048
     Dates: start: 20070129
  20. DEPAS [Concomitant]
     Indication: HEADACHE
     Dosage: .5 MG, 1X/DAY
     Route: 048
     Dates: start: 20060907
  21. BAKTAR [Concomitant]
     Dosage: 1 TAB(S), 1X/DAY
     Route: 048
     Dates: start: 20070110

REACTIONS (1)
  - GASTRIC CANCER [None]
